FAERS Safety Report 10055501 (Version 1)
Quarter: 2014Q2

REPORT INFORMATION
  Report Type: Spontaneous
  Country: US (occurrence: US)
  Receive Date: 20140403
  Receipt Date: 20140403
  Transmission Date: 20141212
  Serious: No
  Sender: FDA-Public Use
  Company Number: US-009507513-1403USA011974

PATIENT
  Age: 21 Year
  Sex: Female

DRUGS (1)
  1. NUVARING [Suspect]
     Dosage: 3 WEEKS IN, 1 WEEK OUT
     Route: 067

REACTIONS (3)
  - Menstruation delayed [Unknown]
  - Device expulsion [Unknown]
  - Inappropriate schedule of drug administration [Unknown]
